FAERS Safety Report 10668793 (Version 1)
Quarter: 2014Q4

REPORT INFORMATION
  Report Type: Spontaneous
  Country: US (occurrence: US)
  Receive Date: 20141222
  Receipt Date: 20141222
  Transmission Date: 20150529
  Serious: Yes (Hospitalization, Other)
  Sender: FDA-Public Use
  Company Number: US-TARO-2014TAR00625

PATIENT
  Age: 84 Year
  Sex: Male
  Weight: 104.31 kg

DRUGS (2)
  1. UNSPECIFIED HIGH BLOOD PRESSURE MEDICATION [Concomitant]
     Active Substance: UNSPECIFIED INGREDIENT
  2. WARFARIN SODIUM TABLETS USP 5MG [Suspect]
     Active Substance: WARFARIN SODIUM
     Dosage: 5 MG, 1X/DAY
     Route: 048
     Dates: end: 20140920

REACTIONS (3)
  - Muscular weakness [Not Recovered/Not Resolved]
  - Haematoma [Not Recovered/Not Resolved]
  - Nerve compression [Not Recovered/Not Resolved]

NARRATIVE: CASE EVENT DATE: 20140920
